FAERS Safety Report 6611247-8 (Version None)
Quarter: 2010Q1

REPORT INFORMATION
  Report Type: 
  Country: None (occurrence: None)
  Receive Date: 20100301
  Receipt Date: 20100301
  Transmission Date: 20100710
  Serious: No
  Sender: FDA-Public Use
  Company Number: None

PATIENT
  Age: 76 Year
  Sex: Male
  Weight: 60.3 kg

DRUGS (3)
  1. RANITIDINE [Suspect]
     Indication: GASTROINTESTINAL HAEMORRHAGE
     Dosage: 150 MG BID PO
     Route: 048
     Dates: start: 20091217, end: 20091229
  2. RANITIDINE [Suspect]
     Indication: PROPHYLAXIS
     Dosage: 150 MG BID PO
     Route: 048
     Dates: start: 20091217, end: 20091229
  3. ZOSTER VACCINE [Suspect]
     Indication: IMMUNISATION
     Dosage: 1 UNITS ONCE SQ
     Route: 058
     Dates: start: 20091224, end: 20091224

REACTIONS (6)
  - HYPERSENSITIVITY [None]
  - INFLAMMATION [None]
  - LUNG DISORDER [None]
  - PAIN [None]
  - RHINORRHOEA [None]
  - STAPHYLOCOCCAL SCALDED SKIN SYNDROME [None]
